FAERS Safety Report 24591191 (Version 2)
Quarter: 2025Q3

REPORT INFORMATION
  Report Type: Report from Study
  Country: ZA (occurrence: ZA)
  Receive Date: 20241108
  Receipt Date: 20250810
  Transmission Date: 20251021
  Serious: Yes (Hospitalization, Other)
  Sender: ALEXION PHARMACEUTICALS
  Company Number: ZA-AstraZeneca-CH-00728690A

PATIENT
  Age: 75 Year
  Sex: Male

DRUGS (8)
  1. DAPAGLIFLOZIN [Suspect]
     Active Substance: DAPAGLIFLOZIN
     Route: 065
  2. Allergex [Concomitant]
     Route: 065
  3. PREDNISONE [Concomitant]
     Active Substance: PREDNISONE
     Route: 065
  4. PALONOSETRON HYDROCHLORIDE [Concomitant]
     Active Substance: PALONOSETRON HYDROCHLORIDE
  5. ATROPINE SULFATE [Concomitant]
     Active Substance: ATROPINE SULFATE
  6. DEXAMETHASONE [Concomitant]
     Active Substance: DEXAMETHASONE
  7. Aprepitant combipack eurolab [Concomitant]
  8. VECTIBIX [Concomitant]
     Active Substance: PANITUMUMAB

REACTIONS (2)
  - Renal impairment [Unknown]
  - Blood potassium increased [Unknown]
